FAERS Safety Report 10075475 (Version 1)
Quarter: 2014Q2

REPORT INFORMATION
  Report Type: Spontaneous
  Country: FR (occurrence: FR)
  Receive Date: 20140414
  Receipt Date: 20140414
  Transmission Date: 20141212
  Serious: Yes (Other)
  Sender: FDA-Public Use
  Company Number: FR-ROCHE-1378199

PATIENT
  Age: 73 Year
  Sex: Male

DRUGS (17)
  1. MABTHERA [Suspect]
     Indication: CHRONIC LYMPHOCYTIC LEUKAEMIA
     Route: 042
     Dates: start: 20130624, end: 20131113
  2. FLUDARABINE PHOSPHATE [Suspect]
     Indication: CHRONIC LYMPHOCYTIC LEUKAEMIA
     Route: 048
     Dates: start: 20130625, end: 20131116
  3. ENDOXAN [Suspect]
     Indication: CHRONIC LYMPHOCYTIC LEUKAEMIA
     Route: 048
     Dates: start: 20130625, end: 20131116
  4. NEULASTA [Concomitant]
     Route: 065
  5. BACTRIM [Concomitant]
     Dosage: 800/160
     Route: 065
  6. ZELITREX [Concomitant]
     Route: 065
  7. PREDNISONE [Concomitant]
     Route: 065
     Dates: start: 20130529
  8. ALLOPURINOL [Concomitant]
     Route: 048
  9. CITALOPRAM [Concomitant]
     Route: 048
  10. TAMSULOSINE [Concomitant]
     Route: 048
  11. TRIMEBUTINE [Concomitant]
     Route: 048
  12. MACROGOL 4000 [Concomitant]
     Dosage: POWDER FOR ORAL SOLUTION
     Route: 065
  13. CEFTRIAXONE [Concomitant]
     Dosage: 1 G/ 10 ML A DAY
     Route: 065
  14. FLAGYL [Concomitant]
     Route: 048
  15. AMIKACINE [Concomitant]
     Route: 065
  16. ECONAZOLE [Concomitant]
  17. DEXERYL (FRANCE) [Concomitant]

REACTIONS (4)
  - Neutropenia [Not Recovered/Not Resolved]
  - Anaemia [Not Recovered/Not Resolved]
  - Pancytopenia [Not Recovered/Not Resolved]
  - Myelodysplastic syndrome [Not Recovered/Not Resolved]
